FAERS Safety Report 17162534 (Version 1)
Quarter: 2019Q4

REPORT INFORMATION
  Report Type: Spontaneous
  Country: US (occurrence: US)
  Receive Date: 20191122
  Receipt Date: 20191122
  Transmission Date: 20200122
  Serious: Yes (Life-Threatening, Hospitalization, Disabling, Other)
  Sender: FDA-Public Use
  Company Number: None

PATIENT
  Age: 21 Year
  Sex: Male
  Weight: 79.38 kg

DRUGS (5)
  1. SELEGILINE HCL [Suspect]
     Active Substance: SELEGILINE HYDROCHLORIDE
     Indication: DEPRESSION
     Dosage: ?          QUANTITY:10 MG MILLIGRAM(S);?
     Route: 048
  2. ZYPREXA ZYDIS [Concomitant]
     Active Substance: OLANZAPINE
  3. CYMBALTA [Concomitant]
     Active Substance: DULOXETINE HYDROCHLORIDE
  4. ABILIFY MAINTENA [Suspect]
     Active Substance: ARIPIPRAZOLE
  5. DEPAKOTE [Concomitant]
     Active Substance: DIVALPROEX SODIUM

REACTIONS (3)
  - Psychotic behaviour [None]
  - Acute psychosis [None]
  - Amphetamines positive [None]

NARRATIVE: CASE EVENT DATE: 20180602
